FAERS Safety Report 7323556-8 (Version None)
Quarter: 2011Q1

REPORT INFORMATION
  Report Type: 
  Country: None (occurrence: None)
  Receive Date: 20110301
  Receipt Date: 20110216
  Transmission Date: 20110831
  Serious: Yes (Other)
  Sender: FDA-Public Use
  Company Number: JP-ELI_LILLY_AND_COMPANY-JP201102007351

PATIENT

DRUGS (4)
  1. HIRNAMIN [Concomitant]
     Indication: INSOMNIA
     Dosage: 15 MG, DAILY (1/D)
     Route: 064
  2. RISPERDAL [Concomitant]
     Indication: BIPOLAR I DISORDER
     Dosage: 4 MG, DAILY (1/D)
     Route: 064
     Dates: end: 20101007
  3. MYSLEE [Concomitant]
     Indication: INSOMNIA
     Dosage: 5 MG, DAILY (1/D)
     Route: 064
  4. ZYPREXA [Suspect]
     Indication: BIPOLAR I DISORDER
     Dosage: 20 MG, DAILY (1/D)
     Route: 064
     Dates: end: 20110214

REACTIONS (4)
  - RESPIRATORY ARREST [None]
  - DEHYDRATION [None]
  - DRUG EXPOSURE DURING PREGNANCY [None]
  - VOMITING NEONATAL [None]
